FAERS Safety Report 5263297-4 (Version None)
Quarter: 2007Q1

REPORT INFORMATION
  Report Type: 
  Country: None (occurrence: None)
  Receive Date: 20061219
  Receipt Date: 20060919
  Transmission Date: 20070707
  Serious: No
  Sender: FDA-Public Use
  Company Number: 2006US001964

PATIENT
  Age: 23 Year
  Sex: Male

DRUGS (19)
  1. VESICARE [Suspect]
     Indication: MICTURITION URGENCY
     Dosage: SEE IMAGE
     Route: 048
  2. DEPAKOTE [Concomitant]
  3. DIAMOX (ACETAZOLAMIDE SODIUM) [Concomitant]
  4. LOVOXYL [Concomitant]
  5. DDACP [Concomitant]
  6. OSCAL 500-D (COLECALCIFEROL, CALCIUM) [Concomitant]
  7. ERYTHROMYCIN [Concomitant]
  8. FIBER CHOICE [Concomitant]
  9. DOXYCYCLINE [Concomitant]
  10. MILAX (GLYCEROL) [Concomitant]
  11. HYDROCORTISONE (HYDROCORTISONE HYDROGEN SUCCINATE) [Concomitant]
  12. MULTIVITAMIN [Concomitant]
  13. ANDROGEL [Concomitant]
  14. PULMICORT [Concomitant]
  15. ALBUTEROL (SALBUTAMOL SULFATE) [Concomitant]
  16. ALEVE [Concomitant]
  17. XANAX [Concomitant]
  18. ACTINOL [Concomitant]
  19. CHLORHEXIDINE (CHLORHEXIDINE) [Concomitant]

REACTIONS (3)
  - OEDEMA PERIPHERAL [None]
  - PENILE PAIN [None]
  - URINARY RETENTION [None]
